FAERS Safety Report 15135281 (Version 2)
Quarter: 2018Q3

REPORT INFORMATION
  Report Type: Spontaneous
  Country: JP (occurrence: JP)
  Receive Date: 20180712
  Receipt Date: 20180806
  Transmission Date: 20181010
  Serious: Yes (Death, Life-Threatening, Hospitalization, Disabling, Other)
  Sender: FDA-Public Use
  Company Number: JP-SA-2018SA061148

PATIENT
  Age: 84 Year
  Sex: Male
  Weight: 75 kg

DRUGS (5)
  1. VASOLAN [ISOXSUPRINE HYDROCHLORIDE] [Concomitant]
     Indication: ATRIAL FIBRILLATION
     Dosage: 40 MG, BID
     Route: 048
  2. RYTHMODAN CAP 50MG [Concomitant]
     Indication: ATRIAL FIBRILLATION
     Dosage: 50 MG, BID
     Route: 048
  3. AIMIX [Concomitant]
     Active Substance: AMLODIPINE BESYLATE\IRBESARTAN
     Indication: HYPERTENSION
     Dosage: 1 DF, QD
     Route: 048
  4. PLAVIX [Suspect]
     Active Substance: CLOPIDOGREL BISULFATE
     Indication: CORONARY ARTERIAL STENT INSERTION
  5. PLAVIX [Suspect]
     Active Substance: CLOPIDOGREL BISULFATE
     Indication: MYOCARDIAL ISCHAEMIA
     Dosage: 75 MG, QD
     Route: 048

REACTIONS (9)
  - Headache [Fatal]
  - Pupils unequal [Fatal]
  - Haemorrhagic diathesis [Fatal]
  - Sepsis [Fatal]
  - Haematoma [Fatal]
  - Subdural haematoma [Fatal]
  - Altered state of consciousness [Fatal]
  - Paralysis [Fatal]
  - Acquired haemophilia [Fatal]

NARRATIVE: CASE EVENT DATE: 20170829
